FAERS Safety Report 9669220 (Version 1)
Quarter: 2013Q4

REPORT INFORMATION
  Report Type: Spontaneous
  Country: US (occurrence: US)
  Receive Date: 20131105
  Receipt Date: 20131105
  Transmission Date: 20140711
  Serious: Yes (Hospitalization)
  Sender: FDA-Public Use
  Company Number: US-SA-2013SA112409

PATIENT
  Age: 59 Year
  Sex: Female

DRUGS (1)
  1. AUBAGIO [Suspect]
     Route: 048
     Dates: end: 201310

REACTIONS (4)
  - Cardiac failure congestive [Unknown]
  - Feeling abnormal [Unknown]
  - Balance disorder [Unknown]
  - Blood pressure increased [Unknown]
